FAERS Safety Report 23160713 (Version 1)
Quarter: 2023Q4

REPORT INFORMATION
  Report Type: Spontaneous
  Country: US (occurrence: US)
  Receive Date: 20231108
  Receipt Date: 20231108
  Transmission Date: 20240110
  Serious: No
  Sender: FDA-Public Use
  Company Number: US-SA-SAC20231030002297

PATIENT
  Age: 61 Year
  Sex: Male

DRUGS (1)
  1. DUPIXENT [Suspect]
     Active Substance: DUPILUMAB
     Dosage: DOSE- 300MG FREQUENCY- ONCE EVERY 2 WEEKS (QOW)
     Route: 058

REACTIONS (2)
  - Dry skin [Unknown]
  - Pruritus [Unknown]
